FAERS Safety Report 8817536 (Version 1)
Quarter: 2012Q4

REPORT INFORMATION
  Report Type: 
  Country: DE (occurrence: DE)
  Receive Date: 20121004
  Receipt Date: 20121004
  Transmission Date: 20130627
  Serious: Yes (Other)
  Sender: FDA-Public Use
  Company Number: DE-ROCHE-1132442

PATIENT
  Sex: Female

DRUGS (5)
  1. HERCEPTIN [Suspect]
     Indication: BREAST CANCER
     Route: 065
     Dates: start: 201009, end: 201204
  2. XELODA [Suspect]
     Indication: BREAST CANCER
     Route: 065
     Dates: start: 201204
  3. ANASTROZOL [Concomitant]
     Indication: BREAST CANCER
     Route: 065
     Dates: start: 201009, end: 201112
  4. EXEMESTANE [Concomitant]
     Indication: BREAST CANCER
     Route: 065
     Dates: start: 201201, end: 201204
  5. LAPATINIB [Concomitant]
     Indication: BREAST CANCER
     Route: 065
     Dates: start: 201204

REACTIONS (1)
  - Neoplasm malignant [Not Recovered/Not Resolved]
